FAERS Safety Report 5141021-3 (Version None)
Quarter: 2006Q4

REPORT INFORMATION
  Report Type: 
  Country: None (occurrence: None)
  Receive Date: 20061026
  Receipt Date: 20061020
  Transmission Date: 20070319
  Serious: Yes (Life-Threatening, Hospitalization, Other)
  Sender: FDA-Public Use
  Company Number: 112421ISR

PATIENT
  Age: 55 Year
  Sex: Female

DRUGS (3)
  1. COPAXONE [Suspect]
     Indication: MULTIPLE SCLEROSIS
     Dosage: 20 MG (20 MG, ONCE A DAY) SUBCUTANEOUS
     Route: 058
     Dates: start: 20030101
  2. ASCORBIC ACID [Concomitant]
  3. HYPERICUM PERFORATUM [Concomitant]

REACTIONS (6)
  - ATRIOVENTRICULAR BLOCK THIRD DEGREE [None]
  - CONFUSIONAL STATE [None]
  - FALL [None]
  - LOSS OF CONSCIOUSNESS [None]
  - PALLOR [None]
  - SYNCOPE [None]
